FAERS Safety Report 22536999 (Version 1)
Quarter: 2023Q2

REPORT INFORMATION
  Report Type: Spontaneous
  Country: US (occurrence: US)
  Receive Date: 20230608
  Receipt Date: 20230608
  Transmission Date: 20230722
  Serious: No
  Sender: FDA-Public Use
  Company Number: US-TEVA-2023-US-2891364

PATIENT
  Age: 28 Year
  Sex: Female

DRUGS (1)
  1. DEXTROAMPHET SACCHARAT, AMPHET ASPARTATE, DEXTROAMPHET SULFATE AND AMP [Suspect]
     Active Substance: AMPHETAMINE ASPARTATE\AMPHETAMINE ASPARTATE MONOHYDRATE\AMPHETAMINE SULFATE\DEXTROAMPHETAMINE SACCHA
     Indication: Attention deficit hyperactivity disorder
     Dosage: SALT TABLETS, 30MG
     Route: 065
     Dates: start: 202011

REACTIONS (5)
  - Drug ineffective [Unknown]
  - Anxiety [Unknown]
  - Hyperphagia [Unknown]
  - Depression [Unknown]
  - Anger [Unknown]

NARRATIVE: CASE EVENT DATE: 20230401
